FAERS Safety Report 5852113-5 (Version None)
Quarter: 2008Q3

REPORT INFORMATION
  Report Type: 
  Country: None (occurrence: None)
  Receive Date: 20080821
  Receipt Date: 20080811
  Transmission Date: 20090109
  Serious: Yes (Hospitalization)
  Sender: FDA-Public Use
  Company Number: DE-JNJFOC-20080802300

PATIENT
  Sex: Male
  Weight: 95 kg

DRUGS (2)
  1. DOXORUBICIN HCL [Suspect]
     Route: 042
  2. DOXORUBICIN HCL [Suspect]
     Indication: MYCOSIS FUNGOIDES
     Dosage: TOTAL DOSE ADMINISTERED  500MG
     Route: 042

REACTIONS (1)
  - CHOLECYSTITIS [None]
